FAERS Safety Report 6620194-7 (Version None)
Quarter: 2010Q1

REPORT INFORMATION
  Report Type: 
  Country: None (occurrence: None)
  Receive Date: 20100308
  Receipt Date: 20100308
  Transmission Date: 20100710
  Serious: Yes (Other)
  Sender: FDA-Public Use
  Company Number: None

PATIENT
  Age: 50 Year
  Sex: Male
  Weight: 68.0396 kg

DRUGS (2)
  1. INSULIN ASPART [Suspect]
     Indication: TYPE 1 DIABETES MELLITUS
     Dosage: 2 UNITS 3 X DAY INJECTION
     Dates: start: 20100129
  2. INSULIN DETEMIR [Suspect]
     Indication: TYPE 1 DIABETES MELLITUS
     Dosage: 6 UNITS 2X DAY INJECTION
     Dates: start: 20100129

REACTIONS (1)
  - ERECTILE DYSFUNCTION [None]
